FAERS Safety Report 11404934 (Version 1)
Quarter: 2015Q3

REPORT INFORMATION
  Report Type: Spontaneous
  Country: US (occurrence: US)
  Receive Date: 20150821
  Receipt Date: 20150821
  Transmission Date: 20151125
  Serious: No
  Sender: FDA-Public Use
  Company Number: US-NOVOPROD-424521

PATIENT
  Age: 57 Year
  Sex: Female

DRUGS (1)
  1. VICTOZA [Suspect]
     Active Substance: LIRAGLUTIDE
     Indication: TYPE 2 DIABETES MELLITUS
     Dosage: 1.2 MG, QD
     Route: 058
     Dates: end: 20141003

REACTIONS (7)
  - Irritability [Recovering/Resolving]
  - Pain in jaw [Recovering/Resolving]
  - Bruxism [Recovering/Resolving]
  - Stress [Recovering/Resolving]
  - Anger [Recovering/Resolving]
  - Unevaluable event [Recovering/Resolving]
  - Hostility [Recovering/Resolving]

NARRATIVE: CASE EVENT DATE: 20141002
